FAERS Safety Report 10007106 (Version 2)
Quarter: 2014Q1

REPORT INFORMATION
  Report Type: Spontaneous
  Country: US (occurrence: US)
  Receive Date: 20140313
  Receipt Date: 20140313
  Transmission Date: 20141002
  Serious: Yes (Other)
  Sender: FDA-Public Use
  Company Number: US-GILEAD-2013-0068452

PATIENT
  Sex: 0

DRUGS (3)
  1. LETAIRIS [Suspect]
     Indication: PRODUCT USED FOR UNKNOWN INDICATION
     Dosage: 10 MG, QD
  2. TYVASO [Concomitant]
  3. REVATIO [Concomitant]

REACTIONS (2)
  - Drug ineffective [Unknown]
  - Cough [Unknown]
